FAERS Safety Report 4365718-8 (Version None)
Quarter: 2004Q2

REPORT INFORMATION
  Report Type: 
  Country: None (occurrence: None)
  Receive Date: 20040521
  Receipt Date: 20031219
  Transmission Date: 20050107
  Serious: Yes (Other)
  Sender: FDA-Public Use
  Company Number: M2003.6670

PATIENT
  Age: 51 Year
  Sex: Female

DRUGS (7)
  1. RIMACTANE [Suspect]
     Indication: PULMONARY TUBERCULOSIS
     Dosage: 0.45 G/D, ORAL
     Route: 048
     Dates: start: 20010113, end: 20010213
  2. PYRAZINAMIDE [Suspect]
     Dosage: 1.2 G/D
     Dates: start: 20010113, end: 20010207
  3. ISONIAZID [Concomitant]
  4. ETHAMBUTOL HCL [Concomitant]
  5. PYRAZINAMIDE [Concomitant]
  6. ALLOPURINOL [Concomitant]
  7. TEPRENONE [Concomitant]

REACTIONS (6)
  - AGRANULOCYTOSIS [None]
  - COUGH [None]
  - EOSINOPHILIA [None]
  - HYPERURICAEMIA [None]
  - PRODUCTIVE COUGH [None]
  - RASH [None]
